FAERS Safety Report 17885727 (Version 1)
Quarter: 2020Q2

REPORT INFORMATION
  Report Type: Spontaneous
  Country: GB (occurrence: GB)
  Receive Date: 20200611
  Receipt Date: 20200611
  Transmission Date: 20200714
  Serious: Yes (Other)
  Sender: FDA-Public Use
  Company Number: GB-MYLANLABS-2020M1055423

PATIENT
  Age: 67 Year
  Sex: Male
  Weight: 77 kg

DRUGS (14)
  1. DERMOL                             /01330701/ [Concomitant]
  2. RAMIPRIL. [Concomitant]
     Active Substance: RAMIPRIL
     Dosage: 10 MILLIGRAM, QD
  3. SIMVASTATIN. [Suspect]
     Active Substance: SIMVASTATIN
     Indication: BLOOD CHOLESTEROL INCREASED
     Dosage: 40 MILLIGRAM, QD
     Route: 048
     Dates: start: 20090126, end: 20140914
  4. FYBOGEL [Concomitant]
     Active Substance: PLANTAGO OVATA SEED
  5. SALBUTAMOL [Concomitant]
     Active Substance: ALBUTEROL
     Dosage: 100 MICROGRAM
     Route: 055
  6. MESALAZINE [Concomitant]
     Active Substance: MESALAMINE
     Dosage: 1G/100ML
  7. VITAMIN D                          /07503901/ [Concomitant]
     Active Substance: VITAMIN D NOS
  8. INCRUSE ELLIPTA [Concomitant]
     Active Substance: UMECLIDINIUM BROMIDE
  9. HYDROMOL                           /06335901/ [Concomitant]
     Active Substance: PARAFFIN\WAX, EMULSIFYING
  10. PENTASA [Concomitant]
     Active Substance: MESALAMINE
     Dosage: 2 GRAM
  11. ASCORBIC ACID. [Concomitant]
     Active Substance: ASCORBIC ACID
  12. PROTOPIC [Concomitant]
     Active Substance: TACROLIMUS
     Dosage: 1 PERCENT
  13. MOMETASONE FUROATE. [Concomitant]
     Active Substance: MOMETASONE FUROATE
     Dosage: 0.1 PERCENT
  14. TAMSULOSIN [Concomitant]
     Active Substance: TAMSULOSIN

REACTIONS (1)
  - Pain in extremity [Recovered/Resolved]

NARRATIVE: CASE EVENT DATE: 20090301
